FAERS Safety Report 7007659-3 (Version None)
Quarter: 2010Q3

REPORT INFORMATION
  Report Type: 
  Country: None (occurrence: None)
  Receive Date: 20100922
  Receipt Date: 20100914
  Transmission Date: 20110219
  Serious: Yes (Hospitalization, Other)
  Sender: FDA-Public Use
  Company Number: AU-PFIZER INC-2010116357

PATIENT
  Age: 47 Year
  Sex: Male

DRUGS (3)
  1. CHAMPIX [Suspect]
     Indication: SMOKING CESSATION THERAPY
     Dosage: 1 MG, 2X/DAY
  2. ALCOHOL [Suspect]
     Dosage: UNK
  3. LIPITOR [Concomitant]
     Dosage: UNK

REACTIONS (3)
  - EMOTIONAL DISTRESS [None]
  - MEMORY IMPAIRMENT [None]
  - SLEEP ATTACKS [None]
